FAERS Safety Report 9757676 (Version 1)
Quarter: 2013Q4

REPORT INFORMATION
  Report Type: Spontaneous
  Country: US (occurrence: US)
  Receive Date: 20131216
  Receipt Date: 20131216
  Transmission Date: 20140711
  Serious: No
  Sender: FDA-Public Use
  Company Number: US-BIOGENIDEC-2013BI120048

PATIENT
  Age: 50 Year
  Sex: Female

DRUGS (1)
  1. TYSABRI [Suspect]
     Indication: MULTIPLE SCLEROSIS
     Route: 042
     Dates: start: 20120604

REACTIONS (10)
  - Muscle spasticity [Unknown]
  - Back disorder [Unknown]
  - Visual impairment [Unknown]
  - Intentional self-injury [Unknown]
  - Cognitive disorder [Unknown]
  - Aphasia [Unknown]
  - Hypersomnia [Unknown]
  - Fatigue [Unknown]
  - Multiple sclerosis relapse [Unknown]
  - Urticaria [Unknown]
